FAERS Safety Report 24073142 (Version 1)
Quarter: 2024Q3

REPORT INFORMATION
  Report Type: Spontaneous
  Country: NO (occurrence: NO)
  Receive Date: 20240710
  Receipt Date: 20240710
  Transmission Date: 20241017
  Serious: Yes (Other)
  Sender: CHEPLAPHARM
  Company Number: None

PATIENT
  Age: 54 Year
  Sex: Female
  Weight: 76 kg

DRUGS (13)
  1. OLANZAPINE [Suspect]
     Active Substance: OLANZAPINE
     Indication: Bipolar disorder
     Dosage: 20 MG, THEN TAPERED CAREFULLY TO 5 MG.
     Route: 048
     Dates: start: 202406, end: 2024
  2. OLANZAPINE [Suspect]
     Active Substance: OLANZAPINE
     Indication: Psychotic disorder
     Dosage: 20 MG, THEN TAPERED CAREFULLY TO 5 MG.
     Route: 048
     Dates: start: 202406, end: 2024
  3. OLANZAPINE [Suspect]
     Active Substance: OLANZAPINE
     Indication: Bipolar disorder
     Dosage: TAPERED CAREFULLY TO 5 MG.
     Route: 048
  4. OLANZAPINE [Suspect]
     Active Substance: OLANZAPINE
     Indication: Psychotic disorder
     Dosage: TAPERED CAREFULLY TO 5 MG.
     Route: 048
  5. ABILIFY [Concomitant]
     Active Substance: ARIPIPRAZOLE
     Dosage: MORNING/ ONGOING TREATMENT
     Dates: start: 20240520
  6. IMOVANE [Concomitant]
     Active Substance: ZOPICLONE
     Indication: Insomnia
     Dates: start: 2023
  7. DIAZEPAM [Concomitant]
     Active Substance: DIAZEPAM
     Indication: Sleep disorder
     Dates: start: 20240520, end: 202406
  8. DIAZEPAM [Concomitant]
     Active Substance: DIAZEPAM
     Indication: Bipolar disorder
     Dates: start: 20240520, end: 202406
  9. DIAZEPAM [Concomitant]
     Active Substance: DIAZEPAM
     Indication: Restlessness
     Dates: start: 20240520, end: 202406
  10. VITAMIN B [Concomitant]
     Active Substance: VITAMIN B
  11. OMEGA 3 [Concomitant]
     Active Substance: CAPSAICIN
  12. CALCIUM [Concomitant]
     Active Substance: CALCIUM
  13. MAGNESIUM [Concomitant]
     Active Substance: MAGNESIUM

REACTIONS (3)
  - Arrhythmia [Recovered/Resolved]
  - Electrocardiogram QT prolonged [Recovered/Resolved]
  - General physical health deterioration [Unknown]
